FAERS Safety Report 10439366 (Version 1)
Quarter: 2014Q3

REPORT INFORMATION
  Report Type: Spontaneous
  Country: US (occurrence: US)
  Receive Date: 20140908
  Receipt Date: 20140908
  Transmission Date: 20150326
  Serious: No
  Sender: FDA-Public Use
  Company Number: US-BRISTOL-MYERS SQUIBB COMPANY-19952944

PATIENT
  Age: 46 Year
  Sex: Female

DRUGS (3)
  1. KEPPRA [Concomitant]
     Active Substance: LEVETIRACETAM
  2. PROZAC [Concomitant]
     Active Substance: FLUOXETINE HYDROCHLORIDE
  3. ABILIFY [Suspect]
     Active Substance: ARIPIPRAZOLE
     Dosage: 2 MG FOR 2 TO 2.5 WEEKS AND INCREASED TO 5 MG AND THEN REDUCED TO 2 MG

REACTIONS (4)
  - Fatigue [Not Recovered/Not Resolved]
  - Anxiety [Not Recovered/Not Resolved]
  - Depressed mood [Not Recovered/Not Resolved]
  - Crying [Not Recovered/Not Resolved]
